FAERS Safety Report 4662809-9 (Version None)
Quarter: 2005Q2

REPORT INFORMATION
  Report Type: 
  Country: None (occurrence: None)
  Receive Date: 20050512
  Receipt Date: 20050421
  Transmission Date: 20051028
  Serious: Yes (Hospitalization, Other)
  Sender: FDA-Public Use
  Company Number: USA050494898

PATIENT
  Age: 84 Year
  Sex: Female
  Weight: 80 kg

DRUGS (2)
  1. FORTEO [Suspect]
     Indication: OSTEOPOROSIS
     Dosage: 20 UG DAY
     Dates: start: 20050315
  2. DARVOCET-N 100 [Concomitant]

REACTIONS (6)
  - BRADYCARDIA [None]
  - COUGH [None]
  - DYSPNOEA [None]
  - INAPPROPRIATE SCHEDULE OF DRUG ADMINISTRATION [None]
  - PAIN [None]
  - SHOULDER PAIN [None]
